FAERS Safety Report 6420961-9 (Version None)
Quarter: 2009Q4

REPORT INFORMATION
  Report Type: 
  Country: None (occurrence: None)
  Receive Date: 20091030
  Receipt Date: 20091020
  Transmission Date: 20100525
  Serious: Yes (Other)
  Sender: FDA-Public Use
  Company Number: GB-ROCHE-663643

PATIENT
  Age: 57 Year
  Sex: Female

DRUGS (7)
  1. TAMIFLU [Suspect]
     Route: 065
  2. OMEPRAZOLE [Concomitant]
  3. PROPRANOLOL [Concomitant]
     Dosage: THE DRUG REPORTED AS 'PROPANOLOL'
  4. CO-CODAMOL [Concomitant]
  5. INDAPAMIDE [Concomitant]
  6. RAMIPRIL [Concomitant]
  7. ASPIRIN [Concomitant]

REACTIONS (3)
  - CHEILITIS [None]
  - OEDEMA MOUTH [None]
  - OROPHARYNGEAL BLISTERING [None]
